FAERS Safety Report 9312544 (Version 1)
Quarter: 2013Q2

REPORT INFORMATION
  Report Type: Spontaneous
  Country: US (occurrence: US)
  Receive Date: 20130528
  Receipt Date: 20130528
  Transmission Date: 20140414
  Serious: Yes (Other)
  Sender: FDA-Public Use
  Company Number: US-BAYER-2013-063360

PATIENT
  Sex: Male

DRUGS (4)
  1. ALKA-SELTZER PLUS COLD FORMULA DAY/NIGHT EFFERVESCENT COMBI NIGHT [Suspect]
     Indication: NASOPHARYNGITIS
  2. ALKA-SELTZER PLUS COLD FORMULA DAY/NIGHT EFFERVESCENT COMBI DAY [Suspect]
     Indication: NASOPHARYNGITIS
  3. DAYQUIL [DEXTROMET HBR,GUAIF,PARACET,PSEUDOEPH HCL] [Suspect]
     Indication: NASOPHARYNGITIS
  4. NYQUIL [Suspect]
     Indication: NASOPHARYNGITIS

REACTIONS (3)
  - Pneumonia [None]
  - Dyspnoea [None]
  - Drug ineffective [None]
